FAERS Safety Report 11542555 (Version 1)
Quarter: 2015Q3

REPORT INFORMATION
  Report Type: Report from Study
  Country: CN (occurrence: CN)
  Receive Date: 20150923
  Receipt Date: 20150923
  Transmission Date: 20151125
  Serious: Yes (Other)
  Sender: FDA-Public Use
  Company Number: CN-ASTELLAS-2015US033886

PATIENT
  Age: 77 Year
  Sex: Male

DRUGS (1)
  1. MICAFUNGIN [Suspect]
     Active Substance: MICAFUNGIN
     Indication: FUNGAL INFECTION
     Route: 042
     Dates: start: 20130203, end: 20130220

REACTIONS (5)
  - Blood creatinine increased [Recovered/Resolved]
  - Unresponsive to stimuli [Recovering/Resolving]
  - Blood potassium increased [Recovered/Resolved]
  - Pyrexia [Recovered/Resolved]
  - Tic [Recovering/Resolving]

NARRATIVE: CASE EVENT DATE: 20130204
